FAERS Safety Report 9478896 (Version 2)
Quarter: 2013Q3

REPORT INFORMATION
  Report Type: Spontaneous
  Country: GB (occurrence: GB)
  Receive Date: 20130827
  Receipt Date: 20130927
  Transmission Date: 20140515
  Serious: Yes (Death, Hospitalization, Other)
  Sender: FDA-Public Use
  Company Number: GB-BAXTER-2013BAX032676

PATIENT
  Age: 70 Year
  Sex: Male
  Weight: 89.3 kg

DRUGS (21)
  1. DIANEAL PD4 GLUCOSE 1.36% W/V / 13.6 MG/ML [Suspect]
     Indication: PERITONEAL DIALYSIS
     Route: 033
  2. DIANEAL PD4 GLUCOSE 1.36% W/V / 13.6 MG/ML [Suspect]
     Indication: RENAL FAILURE CHRONIC
  3. DIANEAL PD4 GLUCOSE 2.27% W/V / 22.7 MG/ML [Suspect]
     Indication: PERITONEAL DIALYSIS
     Route: 033
  4. DIANEAL PD4 GLUCOSE 2.27% W/V / 22.7 MG/ML [Suspect]
     Indication: RENAL FAILURE CHRONIC
  5. EXTRANEAL (ICODEXTRIN 7.5%) SOLUTION FOR PERITONEAL DIALYSIS [Suspect]
     Indication: PERITONEAL DIALYSIS
     Route: 033
     Dates: end: 20130816
  6. EXTRANEAL (ICODEXTRIN 7.5%) SOLUTION FOR PERITONEAL DIALYSIS [Suspect]
     Indication: RENAL FAILURE CHRONIC
  7. ALFACALCIDOL [Concomitant]
     Indication: PRODUCT USED FOR UNKNOWN INDICATION
     Route: 048
  8. ASPIRIN [Concomitant]
     Indication: PRODUCT USED FOR UNKNOWN INDICATION
     Route: 048
  9. ATORVASTATIN [Concomitant]
     Indication: PRODUCT USED FOR UNKNOWN INDICATION
     Route: 048
  10. ATORVASTATIN [Concomitant]
     Route: 048
  11. BISOPROLOL [Concomitant]
     Indication: PRODUCT USED FOR UNKNOWN INDICATION
     Route: 048
  12. CLOPIDOGREL [Concomitant]
     Indication: PRODUCT USED FOR UNKNOWN INDICATION
     Route: 048
  13. EPOETIN ALFA [Concomitant]
     Indication: PRODUCT USED FOR UNKNOWN INDICATION
     Route: 058
  14. EPOETIN ALFA [Concomitant]
     Route: 058
  15. FUROSEMIDE [Concomitant]
     Indication: PRODUCT USED FOR UNKNOWN INDICATION
     Route: 048
  16. LACTULOSE [Concomitant]
     Indication: PRODUCT USED FOR UNKNOWN INDICATION
     Route: 048
  17. LANSOPRAZOLE [Concomitant]
     Indication: PRODUCT USED FOR UNKNOWN INDICATION
     Route: 048
  18. LINAGLIPTIN [Concomitant]
     Indication: PRODUCT USED FOR UNKNOWN INDICATION
     Route: 048
  19. SUCRALFATE [Concomitant]
     Indication: PRODUCT USED FOR UNKNOWN INDICATION
     Route: 048
  20. TAMSULOSIN [Concomitant]
     Indication: PRODUCT USED FOR UNKNOWN INDICATION
     Route: 048
  21. WARFARIN [Concomitant]
     Indication: PRODUCT USED FOR UNKNOWN INDICATION
     Route: 048

REACTIONS (21)
  - Death [Fatal]
  - Fatigue [Unknown]
  - Constipation [Unknown]
  - Feeling abnormal [Unknown]
  - Hypotension [Unknown]
  - Blood glucose increased [Unknown]
  - Dehydration [Unknown]
  - Peritonitis [Unknown]
  - Vomiting [Unknown]
  - Anaemia [Unknown]
  - Pleural effusion [Unknown]
  - Dysphagia [Unknown]
  - Weight decreased [Unknown]
  - Oesophagitis [Unknown]
  - Gastrooesophageal reflux disease [Unknown]
  - Aortic stenosis [Unknown]
  - Left ventricular dysfunction [Unknown]
  - Cholelithiasis [Unknown]
  - Urinary retention [Unknown]
  - Pulmonary embolism [Unknown]
  - Pleural effusion [Unknown]
